FAERS Safety Report 9224411 (Version 1)
Quarter: 2013Q2

REPORT INFORMATION
  Report Type: Spontaneous
  Country: US (occurrence: US)
  Receive Date: 20130411
  Receipt Date: 20130411
  Transmission Date: 20140414
  Serious: Yes (Hospitalization, Other)
  Sender: FDA-Public Use
  Company Number: US-BAYER-2013-043670

PATIENT
  Age: 42 Year
  Sex: Female

DRUGS (9)
  1. YAZ [Suspect]
     Indication: MENORRHAGIA
  2. PHENTERMINE [Concomitant]
     Dosage: UNK
     Dates: start: 20071115
  3. PHENTERMINE [Concomitant]
     Dosage: UNK
     Dates: start: 20071221
  4. AZITHROMYCIN [Concomitant]
     Dosage: UNK
     Dates: start: 20080607
  5. PHENDIMETRAZINE [Concomitant]
     Dosage: UNK
     Dates: start: 20080201
  6. ACETAMINOPHEN W/OXYCODONE [Concomitant]
     Dosage: UNK
     Dates: start: 20080212
  7. DARVOCET [Concomitant]
  8. PREMARIN [Concomitant]
  9. PIROXICAM [Concomitant]
     Dosage: UNK
     Dates: start: 20080201

REACTIONS (1)
  - Deep vein thrombosis [None]
